FAERS Safety Report 7251670-4 (Version None)
Quarter: 2011Q1

REPORT INFORMATION
  Report Type: 
  Country: None (occurrence: None)
  Receive Date: 20110128
  Receipt Date: 20110114
  Transmission Date: 20110831
  Serious: Yes (Hospitalization, Other)
  Sender: FDA-Public Use
  Company Number: US-BAYER-200922900NA

PATIENT
  Sex: Male
  Weight: 73.9 kg

DRUGS (8)
  1. OPTIRAY 350 [Suspect]
     Indication: JOINT INJURY
     Dosage: 5-10 ML
     Route: 014
     Dates: start: 20090429, end: 20090429
  2. LIDOCAINE HYDROCHLORIDE IN PLASTIC CONTAINER [Suspect]
     Indication: JOINT INJURY
     Route: 014
     Dates: start: 20090429, end: 20090429
  3. NORMAL SALINE [Suspect]
     Indication: ARTHROGRAM
  4. LIDOCAINE HYDROCHLORIDE IN PLASTIC CONTAINER [Suspect]
     Indication: X-RAY LIMB
  5. MAGNEVIST [Suspect]
     Indication: ARTHROGRAM
  6. MAGNEVIST [Suspect]
     Indication: JOINT INJURY
     Dosage: 1 CC DILUTED WITH 10ML OF 0.9%  NORMAL SALINE
     Route: 014
     Dates: start: 20090429, end: 20090429
  7. OPTIRAY 350 [Suspect]
     Indication: X-RAY LIMB
  8. NORMAL SALINE [Suspect]
     Indication: JOINT INJURY
     Dosage: GIVEN WITH 1 CC OF MAGNEVIST
     Route: 014
     Dates: start: 20090429, end: 20090429

REACTIONS (3)
  - PAIN [None]
  - SEPTIC ARTHRITIS STAPHYLOCOCCAL [None]
  - INJURY [None]
